FAERS Safety Report 5625136-9 (Version None)
Quarter: 2008Q1

REPORT INFORMATION
  Report Type: 
  Country: None (occurrence: None)
  Receive Date: 20080213
  Receipt Date: 20080201
  Transmission Date: 20080703
  Serious: Yes (Other)
  Sender: FDA-Public Use
  Company Number: US-PFIZER INC-2008012378

PATIENT
  Sex: Male
  Weight: 88.636 kg

DRUGS (6)
  1. LYRICA [Suspect]
     Indication: INTERVERTEBRAL DISC PROTRUSION
     Dates: start: 20080129, end: 20080201
  2. ZETIA [Concomitant]
  3. PRAVASTATIN [Concomitant]
  4. PREVACID [Concomitant]
  5. MOBIC [Concomitant]
  6. ELAVIL [Concomitant]

REACTIONS (2)
  - CONFUSIONAL STATE [None]
  - IMPAIRED DRIVING ABILITY [None]
